FAERS Safety Report 9795925 (Version 2)
Quarter: 2014Q1

REPORT INFORMATION
  Report Type: Spontaneous
  Country: GB (occurrence: GB)
  Receive Date: 20140103
  Receipt Date: 20140110
  Transmission Date: 20141002
  Serious: Yes (Life-Threatening, Hospitalization)
  Sender: FDA-Public Use
  Company Number: GB-PERRIGO-13GB013193

PATIENT
  Age: 58 Year
  Sex: Female

DRUGS (3)
  1. ACETAMINOPHEN 650 MG ER RED 217 [Suspect]
     Indication: OVERDOSE
     Dosage: 8000 MG, SINGLE
     Route: 048
  2. PERSANTIN [Suspect]
     Indication: OVERDOSE
     Dosage: 8000 MG, SINGLE
     Route: 048
  3. FLUOXETINE [Concomitant]
     Indication: DEPRESSION

REACTIONS (9)
  - Cardiac arrest [Recovered/Resolved]
  - Renal failure acute [Recovered/Resolved]
  - Multi-organ failure [Recovered/Resolved]
  - Intestinal ischaemia [Recovered/Resolved with Sequelae]
  - Sinus tachycardia [Recovered/Resolved]
  - Hypotension [Recovered/Resolved]
  - Overdose [Recovered/Resolved]
  - Metabolic acidosis [Recovered/Resolved]
  - Liver function test abnormal [Recovered/Resolved]
